FAERS Safety Report 9264900 (Version 2)
Quarter: 2013Q3

REPORT INFORMATION
  Report Type: Spontaneous
  Country: CA (occurrence: CA)
  Receive Date: 20130501
  Receipt Date: 20130727
  Transmission Date: 20140515
  Serious: Yes (Death, Other)
  Sender: FDA-Public Use
  Company Number: PHHY2013CA041684

PATIENT
  Sex: Female

DRUGS (4)
  1. EVEROLIMUS [Suspect]
     Dates: start: 201103
  2. EVEROLIMUS [Suspect]
     Dosage: 5 MG, QD
  3. SULFAMETHOXAZOLE+TRIMETHOPRIM [Suspect]
  4. AMIKACIN [Concomitant]

REACTIONS (18)
  - Death [Fatal]
  - Haemorrhage intracranial [Unknown]
  - Hemianopia homonymous [Unknown]
  - Ataxia [Unknown]
  - Hyperreflexia [Unknown]
  - Hypoaesthesia [Unknown]
  - Brain abscess [Unknown]
  - Metastases to central nervous system [Unknown]
  - Abnormal behaviour [Unknown]
  - Gait disturbance [Unknown]
  - Fall [Unknown]
  - Productive cough [Unknown]
  - Sputum discoloured [Unknown]
  - Mucosal inflammation [Unknown]
  - Fatigue [Unknown]
  - Thrombocytopenia [Unknown]
  - Nocardiosis [Unknown]
  - Blood glucose increased [Unknown]
